FAERS Safety Report 23298263 (Version 1)
Quarter: 2023Q4

REPORT INFORMATION
  Report Type: Spontaneous
  Country: US (occurrence: None)
  Receive Date: 20231214
  Receipt Date: 20231214
  Transmission Date: 20240109
  Serious: Yes (Other)
  Sender: FDA-Public Use
  Company Number: None

PATIENT
  Age: 62 Year
  Sex: Female
  Weight: 72 kg

DRUGS (2)
  1. REPATHA [Suspect]
     Active Substance: EVOLOCUMAB
  2. NEXIUM [Concomitant]
     Active Substance: ESOMEPRAZOLE MAGNESIUM

REACTIONS (9)
  - Diarrhoea [None]
  - Nausea [None]
  - Headache [None]
  - Arthralgia [None]
  - Back pain [None]
  - Rhinorrhoea [None]
  - Neck pain [None]
  - Pruritus [None]
  - Depression [None]

NARRATIVE: CASE EVENT DATE: 20231128
